FAERS Safety Report 5672113-8 (Version None)
Quarter: 2008Q1

REPORT INFORMATION
  Report Type: 
  Country: None (occurrence: None)
  Receive Date: 20080319
  Receipt Date: 20080307
  Transmission Date: 20080703
  Serious: Yes (Death)
  Sender: FDA-Public Use
  Company Number: US-ELI_LILLY_AND_COMPANY-US200803001651

PATIENT
  Age: 39 Year
  Sex: Male

DRUGS (1)
  1. XIGRIS [Suspect]
     Dosage: UNK, OTHER

REACTIONS (1)
  - DEATH [None]
